FAERS Safety Report 17658698 (Version 2)
Quarter: 2020Q2

REPORT INFORMATION
  Report Type: Spontaneous
  Country: US (occurrence: US)
  Receive Date: 20200412
  Receipt Date: 20200510
  Transmission Date: 20200713
  Serious: No
  Sender: FDA-Public Use
  Company Number: US-AMGEN-USASP2020059239

PATIENT
  Age: 76 Year
  Sex: Female
  Weight: 77.1 kg

DRUGS (3)
  1. NEULASTA [Suspect]
     Active Substance: PEGFILGRASTIM
     Dosage: 6 MILLIGRAM, CYCLICAL (ONCE EACH CHEMO CYCLE)
     Route: 058
     Dates: start: 201805
  2. NEULASTA [Suspect]
     Active Substance: PEGFILGRASTIM
     Indication: NEUTROPENIA
     Dosage: 6 MILLIGRAM, CYCLICAL (ONCE EACH CHEMO CYCLE)
     Route: 058
     Dates: start: 201805
  3. NEULASTA [Suspect]
     Active Substance: PEGFILGRASTIM
     Dosage: 6 MILLIGRAM, CYCLICAL (ONCE EACH CHEMO CYCLE)
     Route: 058
     Dates: start: 201805

REACTIONS (2)
  - Injection site haematoma [Unknown]
  - Device malfunction [Unknown]

NARRATIVE: CASE EVENT DATE: 20191101
